FAERS Safety Report 8446970-6 (Version None)
Quarter: 2012Q2

REPORT INFORMATION
  Report Type: 
  Country: None (occurrence: None)
  Receive Date: 20120619
  Receipt Date: 20111118
  Transmission Date: 20120825
  Serious: Yes (Other)
  Sender: FDA-Public Use
  Company Number: US-ASTRAZENECA-2011SE34175

PATIENT
  Age: 43 Year
  Sex: Male

DRUGS (10)
  1. SEROQUEL [Suspect]
     Dosage: 25 MG TO 50 MG
     Route: 048
     Dates: start: 20000101, end: 20020101
  2. SEROQUEL [Suspect]
     Route: 048
     Dates: start: 20040201
  3. KLONOPIN [Concomitant]
  4. KLONOPIN [Concomitant]
     Dosage: 1/2 TO 1 MG PO PRN
     Route: 048
     Dates: start: 20050912
  5. SEROQUEL [Suspect]
     Dosage: 25 MG TO 50 MG
     Route: 048
     Dates: start: 20000101, end: 20020101
  6. SEROQUEL [Suspect]
     Route: 048
     Dates: start: 20040201
  7. SEROQUEL [Suspect]
     Route: 048
     Dates: start: 20050908
  8. SEROQUEL [Suspect]
     Indication: INSOMNIA
     Dosage: 25 MG TO 50 MG
     Route: 048
     Dates: start: 20000101, end: 20010101
  9. SEROQUEL [Suspect]
     Indication: ANXIETY
     Dosage: 25 MG TO 50 MG
     Route: 048
     Dates: start: 20000101, end: 20010101
  10. SEROQUEL [Suspect]
     Route: 048
     Dates: start: 20050908

REACTIONS (3)
  - DRUG HYPERSENSITIVITY [None]
  - DYSTONIA [None]
  - TARDIVE DYSKINESIA [None]
